FAERS Safety Report 4380686-0 (Version None)
Quarter: 2004Q2

REPORT INFORMATION
  Report Type: 
  Country: None (occurrence: None)
  Receive Date: 20040614
  Receipt Date: 20040327
  Transmission Date: 20050107
  Serious: Yes (Hospitalization, Other)
  Sender: FDA-Public Use
  Company Number: KII-2004-0011147

PATIENT
  Age: 74 Year
  Sex: Male

DRUGS (10)
  1. THEOPHYLLINE [Suspect]
  2. ACETAMINIOPHEN W/CODEINE(CODEINE, PARACETAMOL) [Suspect]
     Dosage: ORAL
     Route: 048
  3. ACETAMINOPHEN W/ CODEINE [Suspect]
     Dosage: ORAL
     Route: 048
  4. BENZODIAZEPINE DERIVATES [Suspect]
     Dosage: ORAL
     Route: 048
  5. DIPHENHYDRAMINE HCL [Suspect]
     Dosage: ORAL
     Route: 047
  6. NORVASC [Concomitant]
  7. CARDIAC GLYCOSIDES [Concomitant]
  8. OTHER ANTI-ASTHMATICS FOR SYSTEMIC USE [Concomitant]
  9. ACE INHIBITOR NOS [Concomitant]
  10. GLIPIZIDE [Concomitant]

REACTIONS (11)
  - AGITATION [None]
  - BLOOD GLUCOSE ABNORMAL [None]
  - BLOOD PRESSURE DIASTOLIC INCREASED [None]
  - COMA [None]
  - DEPRESSED LEVEL OF CONSCIOUSNESS [None]
  - HYPERHIDROSIS [None]
  - INCREASED BRONCHIAL SECRETION [None]
  - MULTIPLE DRUG OVERDOSE [None]
  - PNEUMONIA [None]
  - RESPIRATION ABNORMAL [None]
  - RESTLESSNESS [None]
